FAERS Safety Report 17098497 (Version 1)
Quarter: 2019Q4

REPORT INFORMATION
  Report Type: Spontaneous
  Country: IT (occurrence: IT)
  Receive Date: 20191202
  Receipt Date: 20191202
  Transmission Date: 20200122
  Serious: Yes (Hospitalization)
  Sender: FDA-Public Use
  Company Number: IT-PFIZER INC-2019513460

PATIENT
  Age: 65 Year
  Sex: Male

DRUGS (12)
  1. CLEXANE [Concomitant]
     Active Substance: ENOXAPARIN SODIUM
  2. DIPEPTIVEN [Concomitant]
     Active Substance: ALANYL GLUTAMINE
  3. TYGACIL [Suspect]
     Active Substance: TIGECYCLINE
     Indication: BACTERIAL INFECTION
     Dosage: 2 DF, 1X/DAY
     Route: 042
     Dates: start: 20191008, end: 20191022
  4. SMOFKABIVEN [Concomitant]
     Active Substance: AMINO ACIDS\DEXTROSE\ELECTROLYTES NOS\SOYBEAN OIL
     Dosage: UNK
  5. URBASON SOLUB [Concomitant]
     Active Substance: METHYLPREDNISOLONE SODIUM SUCCINATE
  6. PREFOLIC [Concomitant]
     Active Substance: LEUCOVORIN CALCIUM
  7. FERLIXIT [Concomitant]
     Active Substance: SODIUM FERRIC GLUCONATE COMPLEX
  8. FLUIMUCIL [Concomitant]
     Active Substance: ACETYLCYSTEINE
     Dosage: UNK
  9. COLISTIMETATO ACCORD [Suspect]
     Active Substance: COLISTIMETHATE SODIUM
     Indication: PNEUMONIA PSEUDOMONAL
     Dosage: 9 MILLION IU, 1X/DAY
     Route: 042
     Dates: start: 20191006
  10. EPREX [Concomitant]
     Active Substance: ERYTHROPOIETIN
  11. ZAVICEFTA [Suspect]
     Active Substance: AVIBACTAM SODIUM\CEFTAZIDIME
     Indication: PNEUMONIA PSEUDOMONAL
     Dosage: 2 DF, 1X/DAY
     Route: 042
     Dates: start: 20191002, end: 20191022
  12. MEROPENEM AUROBINDO [Suspect]
     Active Substance: MEROPENEM
     Indication: PNEUMONIA PSEUDOMONAL
     Dosage: 6 DF, 1X/DAY
     Route: 042
     Dates: start: 20191007, end: 20191022

REACTIONS (1)
  - Dysbiosis [Recovering/Resolving]

NARRATIVE: CASE EVENT DATE: 20191022
